FAERS Safety Report 8244174-3 (Version None)
Quarter: 2012Q1

REPORT INFORMATION
  Report Type: 
  Country: None (occurrence: None)
  Receive Date: 20120329
  Receipt Date: 20120328
  Transmission Date: 20120608
  Serious: Yes (Other)
  Sender: FDA-Public Use
  Company Number: DE-BAYER-2012-026278

PATIENT
  Sex: Male
  Weight: 70 kg

DRUGS (8)
  1. ELONTIL [Concomitant]
  2. MIRTAZAPINE [Concomitant]
  3. BETASERON [Suspect]
     Indication: MULTIPLE SCLEROSIS
  4. ALPRAZOLAM [Concomitant]
  5. NEBIVOLOL HCL [Concomitant]
  6. MARCUMAR [Concomitant]
  7. LYRICA [Concomitant]
  8. SIMVABETA [Concomitant]

REACTIONS (2)
  - NECROSIS [None]
  - IMPAIRED HEALING [None]
